FAERS Safety Report 7214614-7 (Version None)
Quarter: 2010Q4

REPORT INFORMATION
  Report Type: 
  Country: None (occurrence: None)
  Receive Date: 20101230
  Receipt Date: 20101129
  Transmission Date: 20110411
  Serious: Yes (Life-Threatening, Hospitalization)
  Sender: FDA-Public Use
  Company Number: 2010SP054120

PATIENT
  Age: 49 Year
  Sex: Female

DRUGS (4)
  1. REFLEX (MIRTAZAPINE /01293201/) [Suspect]
     Indication: PRODUCT USED FOR UNKNOWN INDICATION
     Dosage: 750 MG; ONCE; PO
     Route: 048
     Dates: start: 20101007, end: 20101007
  2. TETRAMIDE (MIANSERIN HYDROCHLORIDE /00390602/) [Suspect]
     Indication: PRODUCT USED FOR UNKNOWN INDICATION
     Dosage: 40 MG;QD; PO;  1770 MG; ONCE; PO
     Route: 048
     Dates: start: 20101007, end: 20101007
  3. AMOBAN (ZOPICLONE) [Suspect]
     Indication: PRODUCT USED FOR UNKNOWN INDICATION
     Dosage: 520 MG;ONCE; PO
     Route: 048
     Dates: start: 20101007, end: 20101007
  4. BENZALIN (NITRAZEPAM) [Suspect]
     Indication: PRODUCT USED FOR UNKNOWN INDICATION
     Dosage: 280 MG;ONCE; PO
     Route: 048
     Dates: start: 20101007, end: 20101007

REACTIONS (7)
  - ACTIVATION SYNDROME [None]
  - BLOOD POTASSIUM DECREASED [None]
  - COMA [None]
  - MULTIPLE DRUG OVERDOSE INTENTIONAL [None]
  - SUICIDAL IDEATION [None]
  - SUICIDE ATTEMPT [None]
  - VOMITING [None]
